FAERS Safety Report 5763018-2 (Version None)
Quarter: 2008Q2

REPORT INFORMATION
  Report Type: 
  Country: None (occurrence: None)
  Receive Date: 20080609
  Receipt Date: 20080526
  Transmission Date: 20081010
  Serious: Yes (Hospitalization)
  Sender: FDA-Public Use
  Company Number: IN-ELI_LILLY_AND_COMPANY-IN200804004814

PATIENT
  Age: 54 Year
  Sex: Female

DRUGS (6)
  1. BYETTA [Suspect]
     Indication: TYPE 2 DIABETES MELLITUS
     Dosage: 5 UG, 2/D
     Route: 058
     Dates: start: 20080229, end: 20080323
  2. LEVOTHYROXINE SODIUM [Concomitant]
     Dosage: 100 UG, UNKNOWN
     Route: 065
  3. LOSARTAN POTASSIUM [Concomitant]
     Dosage: 50 MG, UNKNOWN
     Route: 065
  4. HYDROCHLOROTHIAZIDE [Concomitant]
     Dosage: 12.5 MG, UNKNOWN
     Route: 065
  5. GLIMEPIRIDE [Concomitant]
     Dosage: 4 MG, UNKNOWN
     Route: 065
  6. METFORMIN HCL [Concomitant]
     Dosage: 1 G, UNKNOWN
     Route: 065

REACTIONS (1)
  - PANCREATITIS [None]
